FAERS Safety Report 12904381 (Version 1)
Quarter: 2016Q4

REPORT INFORMATION
  Report Type: Spontaneous
  Country: US (occurrence: US)
  Receive Date: 20161102
  Receipt Date: 20161102
  Transmission Date: 20170207
  Serious: No
  Sender: FDA-Public Use
  Company Number: US-TAKEDA-2016TUS019577

PATIENT
  Age: 68 Year
  Sex: Female
  Weight: 113.38 kg

DRUGS (9)
  1. COLCRYS [Suspect]
     Active Substance: COLCHICINE
     Indication: GOUT
     Dosage: 0.6 MG, UNK
     Route: 048
     Dates: start: 20161004
  2. THEOPHYLLINE [Concomitant]
     Active Substance: THEOPHYLLINE ANHYDROUS
     Indication: RESPIRATORY DISORDER
     Dosage: 200 MG, QD
     Route: 048
     Dates: start: 2014
  3. VERAPAMIL [Concomitant]
     Active Substance: VERAPAMIL HYDROCHLORIDE
     Indication: CARDIAC DISORDER
  4. PREMPRO [Concomitant]
     Active Substance: ESTROGENS, CONJUGATED\MEDROXYPROGESTERONE ACETATE
     Indication: HORMONE REPLACEMENT THERAPY
     Dosage: UNK, QD
     Route: 048
     Dates: start: 2006
  5. TYLENOL [Concomitant]
     Active Substance: ACETAMINOPHEN
     Indication: CHEST PAIN
     Dosage: 2000 MG, QID
     Route: 048
     Dates: start: 2015
  6. BABY ASPIRIN [Concomitant]
     Active Substance: ASPIRIN
     Indication: PRODUCT USED FOR UNKNOWN INDICATION
     Dosage: 81 MG, QD
     Route: 048
     Dates: start: 2015
  7. LEVOXYL [Concomitant]
     Active Substance: LEVOTHYROXINE SODIUM
     Indication: HYPOTHYROIDISM
     Dosage: 200 MG, QD
     Route: 048
     Dates: start: 2006
  8. VERAPAMIL [Concomitant]
     Active Substance: VERAPAMIL HYDROCHLORIDE
     Indication: HYPERTENSION
     Dosage: 120 MG, QD
     Route: 048
     Dates: start: 2006
  9. ZOLOFT [Concomitant]
     Active Substance: SERTRALINE HYDROCHLORIDE
     Indication: DEPRESSION
     Dosage: 100 MG, UNK
     Dates: start: 2006

REACTIONS (7)
  - Ear infection [Recovering/Resolving]
  - Tooth infection [Recovering/Resolving]
  - Vertigo [Recovering/Resolving]
  - Bladder pain [Recovering/Resolving]
  - Ocular hyperaemia [Not Recovered/Not Resolved]
  - Cystitis [Recovering/Resolving]
  - Skin infection [Not Recovered/Not Resolved]

NARRATIVE: CASE EVENT DATE: 201610
